FAERS Safety Report 9349846 (Version 6)
Quarter: 2016Q1

REPORT INFORMATION
  Report Type: Report from Study
  Country: GB (occurrence: GB)
  Receive Date: 20130614
  Receipt Date: 20160112
  Transmission Date: 20160526
  Serious: Yes (Death, Hospitalization)
  Sender: FDA-Public Use
  Company Number: GB-ROCHE-1236160

PATIENT
  Age: 55 Year
  Sex: Male
  Weight: 59.8 kg

DRUGS (16)
  1. MIRTAZAPINE. [Concomitant]
     Active Substance: MIRTAZAPINE
     Route: 065
     Dates: start: 20130606
  2. PREGABALIN. [Concomitant]
     Active Substance: PREGABALIN
     Route: 065
     Dates: start: 20130514
  3. PREGABALIN. [Concomitant]
     Active Substance: PREGABALIN
     Route: 065
     Dates: start: 20130606
  4. OMEPRAZOLE. [Concomitant]
     Active Substance: OMEPRAZOLE
     Route: 065
  5. FENTANYL. [Concomitant]
     Active Substance: FENTANYL
     Route: 065
     Dates: start: 20130514
  6. FENTANYL. [Concomitant]
     Active Substance: FENTANYL
     Route: 065
     Dates: start: 20130606
  7. ABSTRAL [Concomitant]
     Active Substance: FENTANYL CITRATE
     Route: 065
  8. BEVACIZUMAB [Suspect]
     Active Substance: BEVACIZUMAB
     Indication: COLORECTAL CANCER METASTATIC
     Dosage: DATE OF MOST RECENT DOSE ADMINISTERED PRIOR TO THE ONSET OF SERIOUS ADVERSE EVENT WAS ON 17/MAY/2013
     Route: 042
     Dates: start: 20130326, end: 20130605
  9. ORAMORPH [Concomitant]
     Active Substance: MORPHINE SULFATE
     Dosage: 10-20 MG
     Route: 065
     Dates: start: 20130606
  10. BUSCOPAN [Concomitant]
     Active Substance: BUTYLSCOPOLAMINE BROMIDE
     Route: 065
     Dates: start: 20130507
  11. MORPHINE SULFATE. [Concomitant]
     Active Substance: MORPHINE SULFATE
     Route: 065
  12. ORAMORPH [Concomitant]
     Active Substance: MORPHINE SULFATE
     Dosage: 40-50 MG PRN
     Route: 065
     Dates: start: 20130605
  13. FLUCONAZOLE. [Concomitant]
     Active Substance: FLUCONAZOLE
     Route: 065
     Dates: start: 20130531
  14. LORAZEPAM. [Concomitant]
     Active Substance: LORAZEPAM
     Route: 065
     Dates: start: 20130606
  15. FENTANYL. [Concomitant]
     Active Substance: FENTANYL
     Dosage: DOSE: 37 MCG/HOUR
     Route: 065
     Dates: start: 20130505
  16. LIDOCAINE. [Concomitant]
     Active Substance: LIDOCAINE
     Route: 065
     Dates: start: 20130507

REACTIONS (7)
  - Diarrhoea [Not Recovered/Not Resolved]
  - Malaise [Unknown]
  - Lower gastrointestinal haemorrhage [Fatal]
  - Hypotension [Unknown]
  - Mucosal inflammation [Recovered/Resolved]
  - Lethargy [Recovered/Resolved]
  - Fatigue [Not Recovered/Not Resolved]

NARRATIVE: CASE EVENT DATE: 20130326
